FAERS Safety Report 6083726-6 (Version None)
Quarter: 2009Q1

REPORT INFORMATION
  Report Type: 
  Country: None (occurrence: None)
  Receive Date: 20090217
  Receipt Date: 20090217
  Transmission Date: 20090719
  Serious: Yes (Other)
  Sender: FDA-Public Use
  Company Number: None

PATIENT
  Sex: Female
  Weight: 63.5036 kg

DRUGS (1)
  1. GABAPENTIN [Suspect]
     Indication: TREATMENT FAILURE
     Dosage: 100 MG BID PO
     Route: 048
     Dates: start: 20020601

REACTIONS (1)
  - DRUG INEFFECTIVE [None]
